FAERS Safety Report 16979120 (Version 6)
Quarter: 2020Q1

REPORT INFORMATION
  Report Type: Report from Study
  Country: CA (occurrence: CA)
  Receive Date: 20191031
  Receipt Date: 20200319
  Transmission Date: 20200409
  Serious: Yes (Hospitalization)
  Sender: FDA-Public Use
  Company Number: CA-IPSEN BIOPHARMACEUTICALS, INC.-2019-19644

PATIENT
  Age: 52 Year
  Sex: Male
  Weight: 90.71 kg

DRUGS (1)
  1. SOMATULINE AUTOGEL [Suspect]
     Active Substance: LANREOTIDE ACETATE
     Indication: NEUROENDOCRINE TUMOUR
     Route: 058
     Dates: start: 20190930

REACTIONS (8)
  - Small intestinal obstruction [Recovering/Resolving]
  - Muscle tightness [Recovered/Resolved]
  - Heart rate increased [Recovered/Resolved]
  - Injection site haemorrhage [Recovered/Resolved]
  - Discomfort [Recovering/Resolving]
  - Diarrhoea [Recovered/Resolved]
  - Injection site pain [Recovering/Resolving]
  - Frequent bowel movements [Recovering/Resolving]

NARRATIVE: CASE EVENT DATE: 201910
